FAERS Safety Report 13902085 (Version 1)
Quarter: 2017Q3

REPORT INFORMATION
  Report Type: Spontaneous
  Country: US (occurrence: US)
  Receive Date: 20170824
  Receipt Date: 20170824
  Transmission Date: 20171127
  Serious: No
  Sender: FDA-Public Use
  Company Number: US-ROCHE-1129940

PATIENT
  Sex: Female

DRUGS (3)
  1. HERCEPTIN [Suspect]
     Active Substance: TRASTUZUMAB
     Indication: INFLAMMATORY CARCINOMA OF THE BREAST
  2. TAXOL [Concomitant]
     Active Substance: PACLITAXEL
     Route: 065
  3. HERCEPTIN [Suspect]
     Active Substance: TRASTUZUMAB
     Indication: BRONCHIOLOALVEOLAR CARCINOMA
     Route: 065
     Dates: start: 19990921

REACTIONS (7)
  - Fatigue [Unknown]
  - Paraesthesia [Unknown]
  - Neuropathy peripheral [Unknown]
  - Vomiting [Unknown]
  - Arthritis [Unknown]
  - Diarrhoea [Unknown]
  - Chills [Unknown]
